FAERS Safety Report 4794235-6 (Version None)
Quarter: 2005Q4

REPORT INFORMATION
  Report Type: 
  Country: None (occurrence: None)
  Receive Date: 20051011
  Receipt Date: 20050929
  Transmission Date: 20060501
  Serious: Yes (Disabling)
  Sender: FDA-Public Use
  Company Number: FR-AMGEN-UK152565

PATIENT
  Age: 67 Year
  Sex: Male
  Weight: 62 kg

DRUGS (12)
  1. NEUPOGEN [Suspect]
     Indication: CHEMOTHERAPY
     Route: 042
     Dates: start: 20050617, end: 20050623
  2. VFEND [Suspect]
     Dates: start: 20050620, end: 20050708
  3. ALKERAN [Suspect]
     Route: 042
     Dates: start: 20050608, end: 20050608
  4. BORTEZOMIB [Suspect]
     Route: 042
     Dates: start: 20050604, end: 20050614
  5. FLUCONAZOLE [Concomitant]
     Route: 048
  6. AMPHOTERICIN B [Concomitant]
     Route: 048
  7. VANCOCIN HCL [Concomitant]
     Route: 042
  8. ACYCLOVIR [Concomitant]
     Route: 042
  9. HEPARIN [Concomitant]
     Route: 042
  10. RANITIDINE [Concomitant]
  11. OMEPRAZOLE [Concomitant]
  12. GELOX [Concomitant]

REACTIONS (6)
  - ACUTE PULMONARY OEDEMA [None]
  - ATRIAL FIBRILLATION [None]
  - CARDIAC FAILURE [None]
  - DYSPNOEA [None]
  - EXTRASYSTOLES [None]
  - TACHYCARDIA [None]
